FAERS Safety Report 16221430 (Version 3)
Quarter: 2019Q2

REPORT INFORMATION
  Report Type: Report from Study
  Country: US (occurrence: US)
  Receive Date: 20190422
  Receipt Date: 20190520
  Transmission Date: 20190711
  Serious: Yes (Death, Life-Threatening, Hospitalization, Other)
  Sender: FDA-Public Use
  Company Number: US-BAUSCH-BL-2019-011730

PATIENT
  Age: 62 Year
  Sex: Male
  Weight: 47.03 kg

DRUGS (3)
  1. XIFAXAN [Suspect]
     Active Substance: RIFAXIMIN
     Indication: HYPONATRAEMIA
  2. XIFAXAN [Suspect]
     Active Substance: RIFAXIMIN
     Indication: HYPOOSMOLAR STATE
  3. XIFAXAN [Suspect]
     Active Substance: RIFAXIMIN
     Indication: HEPATIC FAILURE
     Route: 048
     Dates: start: 20190405, end: 20190415

REACTIONS (18)
  - Alcohol use disorder [Unknown]
  - Alcohol abuse [Unknown]
  - Hepatic failure [Fatal]
  - Drug abuse [Unknown]
  - Blood osmolarity decreased [Unknown]
  - Hyponatraemia [Unknown]
  - Phosphorus metabolism disorder [Unknown]
  - Skin ulcer [Unknown]
  - Hepatomegaly [Unknown]
  - Hypermagnesaemia [Unknown]
  - Pain [Unknown]
  - Blood bilirubin abnormal [Unknown]
  - Cirrhosis alcoholic [Fatal]
  - Skin wound [Unknown]
  - Acute hepatitis C [Unknown]
  - Gastrointestinal obstruction [Unknown]
  - Hyperkalaemia [Unknown]
  - Acute kidney injury [Unknown]

NARRATIVE: CASE EVENT DATE: 201904
